FAERS Safety Report 25545475 (Version 1)
Quarter: 2025Q3

REPORT INFORMATION
  Report Type: Spontaneous
  Country: MX (occurrence: MX)
  Receive Date: 20250711
  Receipt Date: 20250711
  Transmission Date: 20251021
  Serious: Yes (Other)
  Sender: MERCK SHARP & DOHME LLC
  Company Number: MX-009507513-2304709

PATIENT
  Age: 36 Year
  Sex: Female

DRUGS (3)
  1. KEYTRUDA [Suspect]
     Active Substance: PEMBROLIZUMAB
     Indication: Triple negative breast cancer
     Route: 065
     Dates: start: 20250115
  2. CYCLOPHOSPHAMIDE\EPIRUBICIN [Suspect]
     Active Substance: CYCLOPHOSPHAMIDE\EPIRUBICIN
     Indication: Triple negative breast cancer
     Dosage: 4 THREE-WEEKLY CYCLES
     Dates: start: 20250115
  3. CARBOPLATIN\PACLITAXEL [Suspect]
     Active Substance: CARBOPLATIN\PACLITAXEL
     Indication: Triple negative breast cancer
     Dosage: WEEKLY (12 APPLICATIONS)
     Dates: start: 20250115

REACTIONS (3)
  - Neuropathy peripheral [Unknown]
  - Fatigue [Unknown]
  - Anaemia [Unknown]

NARRATIVE: CASE EVENT DATE: 20250101
